FAERS Safety Report 6568907-7 (Version None)
Quarter: 2010Q1

REPORT INFORMATION
  Report Type: 
  Country: None (occurrence: None)
  Receive Date: 20100203
  Receipt Date: 20100125
  Transmission Date: 20100710
  Serious: Yes (Hospitalization, Other)
  Sender: FDA-Public Use
  Company Number: GB-BAUSCH-2010BL000428

PATIENT
  Age: 42 Year
  Sex: Male

DRUGS (10)
  1. PREDNISOLONE [Suspect]
     Indication: HENOCH-SCHONLEIN PURPURA
     Route: 048
  2. PREDNISOLONE [Suspect]
  3. PREDNISOLONE [Suspect]
  4. PREDNISOLONE [Suspect]
  5. PREDNISOLONE [Suspect]
  6. PREDNISOLONE [Suspect]
  7. METHYLPREDNISOLONE [Suspect]
     Indication: DRUG USE FOR UNKNOWN INDICATION
     Route: 042
  8. CYCLOPHOSPHAMIDE [Suspect]
     Indication: DRUG USE FOR UNKNOWN INDICATION
     Route: 048
  9. CYCLOPHOSPHAMIDE [Suspect]
     Route: 042
  10. OMEPRAZOLE [Concomitant]
     Indication: DYSPEPSIA

REACTIONS (3)
  - CEREBRAL HAEMORRHAGE [None]
  - GASTROINTESTINAL DISORDER [None]
  - RENAL FAILURE [None]
